FAERS Safety Report 20741189 (Version 1)
Quarter: 2022Q2

REPORT INFORMATION
  Report Type: Spontaneous
  Country: None (occurrence: FR)
  Receive Date: 20220422
  Receipt Date: 20220422
  Transmission Date: 20220720
  Serious: Yes (Hospitalization)
  Sender: FDA-Public Use
  Company Number: FR-AFSSAPS-AVNY20220015

PATIENT
  Age: 16 Year
  Sex: Male
  Weight: 47.6 kg

DRUGS (1)
  1. NITROUS OXIDE [Suspect]
     Active Substance: NITROUS OXIDE
     Indication: Product used for unknown indication
     Route: 045
     Dates: start: 20210506, end: 20220106

REACTIONS (2)
  - Muscular weakness [Recovering/Resolving]
  - Gait disturbance [Recovering/Resolving]
